FAERS Safety Report 9088935 (Version 1)
Quarter: 2013Q1

REPORT INFORMATION
  Report Type: Spontaneous
  Country: PR (occurrence: PR)
  Receive Date: 20130130
  Receipt Date: 20130130
  Transmission Date: 20140127
  Serious: Yes (Hospitalization)
  Sender: FDA-Public Use
  Company Number: PR-ABBOTT-12P-131-0978280-00

PATIENT
  Age: 56 None
  Sex: Female
  Weight: 90.35 kg

DRUGS (9)
  1. HUMIRA PEN [Suspect]
     Indication: RHEUMATOID ARTHRITIS
     Route: 058
     Dates: start: 2007, end: 20120501
  2. HUMIRA PEN [Suspect]
     Route: 058
     Dates: start: 20120609, end: 20120825
  3. ZOCOR [Concomitant]
     Indication: HYPERCHOLESTEROLAEMIA
     Dosage: 1 TABLET DAILY
     Route: 048
  4. VITAMIN D [Concomitant]
     Indication: OSTEOARTHRITIS
     Dosage: 10000 WEEKLY
     Route: 048
  5. VITAMIN D [Concomitant]
     Indication: OSTEOPENIA
  6. SINGULAIR [Concomitant]
     Indication: ASTHMA
     Dosage: 1 TABLET DAILY
     Route: 048
  7. FLORICET [Concomitant]
     Indication: MIGRAINE
     Route: 048
  8. FLEXERIL [Concomitant]
     Indication: MIGRAINE
     Route: 048
  9. ENALAPRIL HCT [Concomitant]
     Indication: HYPERTENSION
     Dosage: 1 TABLET DAILY
     Dates: start: 201203

REACTIONS (2)
  - Urticaria [Recovered/Resolved]
  - Urticaria [Recovered/Resolved]
